FAERS Safety Report 8709894 (Version 3)
Quarter: 2012Q4

REPORT INFORMATION
  Report Type: 
  Country: US (occurrence: US)
  Receive Date: 20120806
  Receipt Date: 20120927
  Transmission Date: 20130627
  Serious: Yes (Hospitalization, Congenital Anomaly, Other)
  Sender: FDA-Public Use
  Company Number: US-JNJFOC-20120517788

PATIENT
  Sex: Female

DRUGS (4)
  1. TOPAMAX [Suspect]
     Indication: FOETAL EXPOSURE DURING PREGNANCY
     Route: 064
     Dates: start: 20041124, end: 20050224
  2. DEPAKOTE [Suspect]
     Indication: FOETAL EXPOSURE DURING PREGNANCY
     Route: 064
  3. SYNTHROID [Concomitant]
     Indication: FOETAL EXPOSURE DURING PREGNANCY
     Route: 064
  4. PRENATAL VITAMINS [Concomitant]
     Indication: FOETAL EXPOSURE DURING PREGNANCY
     Route: 064

REACTIONS (12)
  - Otitis media [Unknown]
  - Eustachian tube dysfunction [Unknown]
  - Dacryostenosis congenital [Unknown]
  - Developmental delay [Unknown]
  - Speech disorder [Recovering/Resolving]
  - Cleft lip [Recovering/Resolving]
  - Cleft palate [Recovering/Resolving]
  - Attention deficit/hyperactivity disorder [Unknown]
  - Convulsion [Unknown]
  - Conductive deafness [Unknown]
  - Emotional distress [Unknown]
  - Social avoidant behaviour [Unknown]
